FAERS Safety Report 7748525-5 (Version None)
Quarter: 2011Q3

REPORT INFORMATION
  Report Type: 
  Country: None (occurrence: None)
  Receive Date: 20110914
  Receipt Date: 20110908
  Transmission Date: 20111222
  Serious: No
  Sender: FDA-Public Use
  Company Number: US-BIOGENIDEC-2011BI026809

PATIENT
  Sex: Male

DRUGS (1)
  1. TYSABRI [Suspect]
     Indication: MULTIPLE SCLEROSIS
     Route: 042
     Dates: start: 20110715

REACTIONS (12)
  - TOOTH FRACTURE [None]
  - FALL [None]
  - MICTURITION URGENCY [None]
  - AUTOMATIC BLADDER [None]
  - INFUSION SITE HAEMATOMA [None]
  - MUSCLE SPASTICITY [None]
  - LIP INJURY [None]
  - PYREXIA [None]
  - URINARY TRACT INFECTION [None]
  - DYSURIA [None]
  - GAIT DISTURBANCE [None]
  - LOSS OF CONTROL OF LEGS [None]
